FAERS Safety Report 18365751 (Version 2)
Quarter: 2020Q4

REPORT INFORMATION
  Report Type: Report from Study
  Country: US (occurrence: US)
  Receive Date: 20201009
  Receipt Date: 20201014
  Transmission Date: 20210114
  Serious: No
  Sender: FDA-Public Use
  Company Number: US-AMGEN-USASP2020159990

PATIENT
  Age: 75 Year
  Sex: Female

DRUGS (11)
  1. COLLAGEN [Concomitant]
     Active Substance: COLLAGEN
     Dosage: UNK
  2. BIOTIN [Concomitant]
     Active Substance: BIOTIN
     Indication: HAIR DISORDER
     Dosage: UNK
  3. VITAMIN C [Concomitant]
     Active Substance: ASCORBIC ACID
  4. REPATHA [Suspect]
     Active Substance: EVOLOCUMAB
     Indication: BLOOD CHOLESTEROL INCREASED
  5. DILTIAZEM. [Concomitant]
     Active Substance: DILTIAZEM
     Indication: ATRIAL FIBRILLATION
     Dosage: 30 MILLIGRAM, QD
  6. VITAMIN D [COLECALCIFEROL] [Concomitant]
     Active Substance: CHOLECALCIFEROL
  7. ELIQUIS [Concomitant]
     Active Substance: APIXABAN
     Dosage: 5 MILLIGRAM, BID
  8. ZESTRIL [Concomitant]
     Active Substance: LISINOPRIL
     Dosage: 5 MILLIGRAM, BID
  9. GLUCOSAMINE [Concomitant]
     Active Substance: GLUCOSAMINE
     Dosage: UNK
  10. REPATHA [Suspect]
     Active Substance: EVOLOCUMAB
     Indication: HYPERCHOLESTEROLAEMIA
     Dosage: 420 MILLIGRAM, QMO
     Route: 065
     Dates: start: 20200924
  11. METFORMINE [METFORMIN] [Concomitant]
     Active Substance: METFORMIN HYDROCHLORIDE
     Indication: BLOOD GLUCOSE INCREASED
     Dosage: 2 TO 3 TIMES A DAY (LATELY 3 TIMES A DAY)

REACTIONS (11)
  - Limb discomfort [Recovered/Resolved]
  - Muscle spasms [Unknown]
  - Paraesthesia [Recovered/Resolved]
  - Asthenopia [Unknown]
  - Pain in extremity [Unknown]
  - Abdominal discomfort [Unknown]
  - Ear discomfort [Unknown]
  - Periorbital swelling [Unknown]
  - Nausea [Not Recovered/Not Resolved]
  - Burning sensation [Unknown]
  - Feeling hot [Recovered/Resolved]

NARRATIVE: CASE EVENT DATE: 202009
